FAERS Safety Report 4589166-0 (Version None)
Quarter: 2005Q1

REPORT INFORMATION
  Report Type: 
  Country: None (occurrence: None)
  Receive Date: 20050215
  Receipt Date: 20050215
  Transmission Date: 20050727
  Serious: Yes (Life-Threatening, Hospitalization)
  Sender: FDA-Public Use
  Company Number: None

PATIENT
  Sex: Female
  Weight: 65 kg

DRUGS (1)
  1. HEPARIN [Suspect]
     Indication: CEREBROVASCULAR ACCIDENT
     Dosage: DRIP  DRIP INTRAVENOUS
     Route: 042
     Dates: start: 20050203, end: 20050204

REACTIONS (3)
  - GASTROINTESTINAL HAEMORRHAGE [None]
  - RESPIRATORY RATE INCREASED [None]
  - RETROPERITONEAL HAEMATOMA [None]
